FAERS Safety Report 6256893-9 (Version None)
Quarter: 2009Q3

REPORT INFORMATION
  Report Type: 
  Country: None (occurrence: None)
  Receive Date: 20090706
  Receipt Date: 20090629
  Transmission Date: 20100115
  Serious: Yes (Death, Hospitalization, Other)
  Sender: FDA-Public Use
  Company Number: US-JNJFOC-20080705821

PATIENT
  Sex: Female
  Weight: 74.39 kg

DRUGS (6)
  1. FENTANYL TRANSDERMAL SYSTEM [Suspect]
     Indication: PAIN
     Route: 062
  2. METHADONE [Suspect]
     Indication: DRUG USE FOR UNKNOWN INDICATION
  3. DIAZEPAM [Suspect]
     Indication: DRUG USE FOR UNKNOWN INDICATION
  4. ZOLOFT [Suspect]
     Indication: POST-TRAUMATIC STRESS DISORDER
     Route: 048
  5. CYCLOBENZAPRINE [Concomitant]
     Indication: DRUG USE FOR UNKNOWN INDICATION
  6. ALPRAZOLAM [Concomitant]

REACTIONS (32)
  - ACCIDENTAL OVERDOSE [None]
  - ACTIVITIES OF DAILY LIVING IMPAIRED [None]
  - ANXIETY [None]
  - BLOOD POTASSIUM DECREASED [None]
  - BLOOD PRESSURE INCREASED [None]
  - BURNING SENSATION [None]
  - CONFUSIONAL STATE [None]
  - CONSTIPATION [None]
  - CONVULSION [None]
  - DELUSION [None]
  - DEPRESSION [None]
  - DIZZINESS [None]
  - DRUG TOXICITY [None]
  - FALL [None]
  - HALLUCINATION [None]
  - HEADACHE [None]
  - HEART RATE INCREASED [None]
  - HEAT EXHAUSTION [None]
  - HEPATIC FAILURE [None]
  - INSOMNIA [None]
  - LOSS OF CONSCIOUSNESS [None]
  - MYOCARDIAL FIBROSIS [None]
  - MYOCARDIAL INFARCTION [None]
  - NIGHT SWEATS [None]
  - NIGHTMARE [None]
  - OEDEMA PERIPHERAL [None]
  - RASH [None]
  - RESPIRATORY ARREST [None]
  - SOMNOLENCE [None]
  - WEIGHT INCREASED [None]
  - WITHDRAWAL SYNDROME [None]
  - WRONG TECHNIQUE IN DRUG USAGE PROCESS [None]
